FAERS Safety Report 5299382-0 (Version None)
Quarter: 2007Q1

REPORT INFORMATION
  Report Type: 
  Country: None (occurrence: None)
  Receive Date: 20070201
  Receipt Date: 20061027
  Transmission Date: 20070707
  Serious: No
  Sender: FDA-Public Use
  Company Number: 2006PV024106

PATIENT
  Age: 70 Year
  Sex: Female
  Weight: 72.8023 kg

DRUGS (4)
  1. BYETTA [Suspect]
     Indication: DIABETES MELLITUS NON-INSULIN-DEPENDENT
     Dosage: 5 MCG; BID; SC
     Route: 058
     Dates: start: 20060901
  2. HUMULIN N [Concomitant]
  3. HUMALOG [Concomitant]
  4. METFORMIN [Concomitant]

REACTIONS (6)
  - DYSPEPSIA [None]
  - INJECTION SITE DISCOMFORT [None]
  - INJECTION SITE ERYTHEMA [None]
  - NAUSEA [None]
  - SPEECH DISORDER [None]
  - WEIGHT DECREASED [None]
